FAERS Safety Report 5643083-3 (Version None)
Quarter: 2008Q1

REPORT INFORMATION
  Report Type: 
  Country: None (occurrence: None)
  Receive Date: 20080226
  Receipt Date: 20080220
  Transmission Date: 20080703
  Serious: Yes (Disabling, Other)
  Sender: FDA-Public Use
  Company Number: 2007SP023603

PATIENT
  Age: 79 Year
  Sex: Female

DRUGS (2)
  1. NASONEX [Suspect]
     Indication: RHINITIS
     Dosage: 2 DF; NAS
     Route: 045
  2. LISINOPRIL [Concomitant]

REACTIONS (4)
  - AGEUSIA [None]
  - ANOSMIA [None]
  - DRUG WITHDRAWAL SYNDROME [None]
  - OTORRHOEA [None]
